FAERS Safety Report 4654363-2 (Version None)
Quarter: 2005Q2

REPORT INFORMATION
  Report Type: 
  Country: None (occurrence: None)
  Receive Date: 20050404
  Receipt Date: 20041228
  Transmission Date: 20051028
  Serious: No
  Sender: FDA-Public Use
  Company Number: USA041287116

PATIENT
  Age: 74 Year
  Sex: Female

DRUGS (14)
  1. CYMBALTA [Suspect]
     Indication: DEPRESSION
     Dosage: 60 MG DAY
     Dates: start: 20041201
  2. ZOCOR (SIMVASTATIN RATIOPHARM) [Concomitant]
  3. SYNTHROID [Concomitant]
  4. ACIPHEX [Concomitant]
  5. ASPIRIN [Concomitant]
  6. MULTI-VITAMIN [Concomitant]
  7. LECITHIN [Concomitant]
  8. ESTER-C (CALCIUM ASCORBATE) [Concomitant]
  9. VITAMIN B-12 [Concomitant]
  10. FOLIC ACID [Concomitant]
  11. VITAMIN E [Concomitant]
  12. RESTORIL [Concomitant]
  13. XANAX (ALPRAZOLAM DUM) [Concomitant]
  14. FISH OIL [Concomitant]

REACTIONS (6)
  - ABNORMAL BEHAVIOUR [None]
  - ANOREXIA [None]
  - DECREASED ACTIVITY [None]
  - HEADACHE [None]
  - NAUSEA [None]
  - WEIGHT DECREASED [None]
